FAERS Safety Report 17404996 (Version 2)
Quarter: 2020Q1

REPORT INFORMATION
  Report Type: Spontaneous
  Country: GB (occurrence: GB)
  Receive Date: 20200211
  Receipt Date: 20200228
  Transmission Date: 20200409
  Serious: Yes (Hospitalization)
  Sender: FDA-Public Use
  Company Number: GB-AUROBINDO-AUR-APL-2020-006318

PATIENT
  Age: 65 Year
  Sex: Male

DRUGS (6)
  1. CLOPIDOGREL [Suspect]
     Active Substance: CLOPIDOGREL BISULFATE
     Indication: ACUTE CORONARY SYNDROME
     Dosage: 600 MILLIGRAM LOADING DOSE
     Route: 065
  2. ASPIRIN. [Suspect]
     Active Substance: ASPIRIN
     Indication: ACUTE CORONARY SYNDROME
     Dosage: 300 MILLIGRAM (LOADING DOSE)
     Route: 065
  3. ASPIRIN. [Suspect]
     Active Substance: ASPIRIN
     Dosage: 75 MILLIGRAM, ONCE A DAY (MAINTAINANCE DOSE)
     Route: 065
  4. HEPARIN [Suspect]
     Active Substance: HEPARIN SODIUM
     Indication: ACUTE CORONARY SYNDROME
     Dosage: UNK
     Route: 065
  5. REOPRO [Suspect]
     Active Substance: ABCIXIMAB
     Indication: PERCUTANEOUS CORONARY INTERVENTION
     Dosage: UNK
     Route: 022
  6. CLOPIDOGREL [Suspect]
     Active Substance: CLOPIDOGREL BISULFATE
     Dosage: 75 MILLIGRAM, ONCE A DAY (MAINTAINENCE DOSE)
     Route: 065

REACTIONS (3)
  - Incorrect route of product administration [Unknown]
  - Spinal epidural haematoma [Unknown]
  - Off label use [Unknown]
